FAERS Safety Report 9255247 (Version 1)
Quarter: 2013Q2

REPORT INFORMATION
  Report Type: Spontaneous
  Country: US (occurrence: None)
  Receive Date: 20130423
  Receipt Date: 20130423
  Transmission Date: 20140414
  Serious: No
  Sender: FDA-Public Use
  Company Number: None

PATIENT
  Sex: Male

DRUGS (1)
  1. SPRYCEL [Suspect]
     Route: 048
     Dates: start: 20130124

REACTIONS (5)
  - Acne [None]
  - Rash [None]
  - Local swelling [None]
  - Erythema [None]
  - Pain in extremity [None]
